FAERS Safety Report 4948663-6 (Version None)
Quarter: 2006Q1

REPORT INFORMATION
  Report Type: 
  Country: None (occurrence: None)
  Receive Date: 20060201
  Receipt Date: 20051120
  Transmission Date: 20060701
  Serious: No
  Sender: FDA-Public Use
  Company Number: 2005PV004626

PATIENT
  Age: 75 Year
  Sex: Female
  Weight: 92.5338 kg

DRUGS (3)
  1. BYETTA [Suspect]
     Indication: DIABETES MELLITUS NON-INSULIN-DEPENDENT
     Dosage: SEE IMAGE
     Route: 058
     Dates: start: 20050901, end: 20051103
  2. BYETTA [Suspect]
     Indication: DIABETES MELLITUS NON-INSULIN-DEPENDENT
     Dosage: SEE IMAGE
     Route: 058
     Dates: start: 20051104
  3. AVANDIA [Concomitant]

REACTIONS (2)
  - BLOOD GLUCOSE DECREASED [None]
  - PRURITUS GENERALISED [None]
